FAERS Safety Report 17776495 (Version 1)
Quarter: 2020Q2

REPORT INFORMATION
  Report Type: Spontaneous
  Country: US (occurrence: US)
  Receive Date: 20200513
  Receipt Date: 20200513
  Transmission Date: 20200714
  Serious: Yes (Hospitalization)
  Sender: FDA-Public Use
  Company Number: None

PATIENT
  Age: 34 Year
  Sex: Female

DRUGS (5)
  1. DEXAMETHASON [Concomitant]
     Active Substance: DEXAMETHASONE
  2. NEUPOGEN [Suspect]
     Active Substance: FILGRASTIM
     Indication: AGRANULOCYTOSIS
     Route: 058
     Dates: start: 20200110
  3. CEFDINIR. [Concomitant]
     Active Substance: CEFDINIR
  4. AMLODIPINE [Concomitant]
     Active Substance: AMLODIPINE BESYLATE
  5. MORPHINE [Concomitant]
     Active Substance: MORPHINE

REACTIONS (1)
  - Hospitalisation [None]
